FAERS Safety Report 8370510-3 (Version None)
Quarter: 2012Q2

REPORT INFORMATION
  Report Type: 
  Country: None (occurrence: None)
  Receive Date: 20120518
  Receipt Date: 20120515
  Transmission Date: 20120825
  Serious: Yes (Other)
  Sender: FDA-Public Use
  Company Number: US-PFIZER INC-2012061893

PATIENT
  Sex: Male

DRUGS (4)
  1. PROTONIX [Suspect]
     Dosage: 40 MG, 1X/DAY
  2. CARDURA [Suspect]
     Dosage: 2 MG, 1X/DAY
  3. PLAVIX [Concomitant]
     Dosage: UNK
  4. CADUET [Suspect]
     Dosage: 10 MG, 1X/DAY

REACTIONS (2)
  - CEREBROVASCULAR ACCIDENT [None]
  - VISUAL FIELD DEFECT [None]
